FAERS Safety Report 6348393-2 (Version None)
Quarter: 2009Q3

REPORT INFORMATION
  Report Type: 
  Country: None (occurrence: None)
  Receive Date: 20090911
  Receipt Date: 20070816
  Transmission Date: 20100115
  Serious: Yes (Other)
  Sender: FDA-Public Use
  Company Number: US-ASTRAZENECA-2006UW10744

PATIENT
  Age: 550 Month
  Sex: Male
  Weight: 73.5 kg

DRUGS (21)
  1. SEROQUEL [Suspect]
     Indication: DEPRESSION
     Route: 048
     Dates: start: 20010901, end: 20030910
  2. SEROQUEL [Suspect]
     Indication: SCHIZOPHRENIA
     Route: 048
     Dates: start: 20010901, end: 20030910
  3. SEROQUEL [Suspect]
     Dosage: 100 TO 900 MG
     Route: 048
     Dates: start: 20010907, end: 20030908
  4. SEROQUEL [Suspect]
     Dosage: 100 TO 900 MG
     Route: 048
     Dates: start: 20010907, end: 20030908
  5. SEROQUEL [Suspect]
     Route: 048
     Dates: start: 20030910
  6. SEROQUEL [Suspect]
     Route: 048
     Dates: start: 20030910
  7. ABILIFY [Suspect]
     Dosage: 20 TO 30 MG
     Dates: start: 20020101
  8. ABILIFY [Suspect]
     Dosage: 15 TO 20 MG
     Route: 048
     Dates: start: 20031015
  9. HALDOL [Concomitant]
     Route: 014
     Dates: start: 20010801
  10. GEODON [Concomitant]
     Dates: start: 20010101, end: 20020101
  11. GEODON [Concomitant]
     Dosage: 20 TO 80 MG
     Dates: start: 20011005
  12. LORAZEPAM [Concomitant]
     Dates: start: 20051222
  13. AVAPRO [Concomitant]
     Dosage: 150 TO 300 MG
     Dates: start: 20051222
  14. CELEXA [Concomitant]
     Dates: start: 20010912
  15. GLUCOPHAGE XR [Concomitant]
     Dosage: 500 TO 2000 MG
     Dates: start: 20051222
  16. ACTOS [Concomitant]
     Dosage: 30 TO 45 MG
     Dates: start: 20031002
  17. LANTUS [Concomitant]
     Dosage: 43 TO 57 UNITS EVERY AM AND 44 TO 53 UNITS EVERY PM
     Dates: start: 20051222
  18. DICYCLOMINE [Concomitant]
     Dates: start: 20030914
  19. TOPAMAX [Concomitant]
     Dates: start: 20031123
  20. TRICOR [Concomitant]
     Dates: start: 20031203
  21. CRESTOR [Concomitant]
     Indication: HYPERLIPIDAEMIA
     Dates: start: 20040504

REACTIONS (10)
  - ABDOMINAL PAIN [None]
  - DIABETES MELLITUS [None]
  - DIABETES MELLITUS INADEQUATE CONTROL [None]
  - DIABETIC NEPHROPATHY [None]
  - HEPATIC STEATOSIS [None]
  - HEPATOMEGALY [None]
  - INSULIN-REQUIRING TYPE 2 DIABETES MELLITUS [None]
  - OBESITY [None]
  - OVERWEIGHT [None]
  - TYPE 2 DIABETES MELLITUS [None]
